FAERS Safety Report 24782313 (Version 3)
Quarter: 2025Q1

REPORT INFORMATION
  Report Type: Spontaneous
  Country: JP (occurrence: JP)
  Receive Date: 20241227
  Receipt Date: 20250114
  Transmission Date: 20250409
  Serious: Yes (Other)
  Sender: ROCHE
  Company Number: JP-ROCHE-10000166669

PATIENT
  Age: 2 Decade
  Sex: Male

DRUGS (1)
  1. XOFLUZA [Suspect]
     Active Substance: BALOXAVIR MARBOXIL
     Indication: Influenza
     Route: 048
     Dates: start: 20241223, end: 20241223

REACTIONS (1)
  - Seizure [Recovered/Resolved]

NARRATIVE: CASE EVENT DATE: 20241223
